FAERS Safety Report 8572181-X (Version None)
Quarter: 2012Q3

REPORT INFORMATION
  Report Type: 
  Country: None (occurrence: None)
  Receive Date: 20120806
  Receipt Date: 20120726
  Transmission Date: 20120928
  Serious: Yes (Other)
  Sender: FDA-Public Use
  Company Number: US-US-EMD SERONO, INC.-7150627

PATIENT
  Sex: Male
  Weight: 72 kg

DRUGS (2)
  1. IBUPROFEN (ADVIL) [Concomitant]
     Indication: PREMEDICATION
  2. REBIF [Suspect]
     Indication: PRODUCT USED FOR UNKNOWN INDICATION
     Route: 058
     Dates: start: 20091214

REACTIONS (3)
  - BLOOD MAGNESIUM DECREASED [None]
  - GRAND MAL CONVULSION [None]
  - DEPRESSION [None]
